FAERS Safety Report 14807844 (Version 3)
Quarter: 2018Q2

REPORT INFORMATION
  Report Type: Spontaneous
  Country: JP (occurrence: JP)
  Receive Date: 20180425
  Receipt Date: 20180608
  Transmission Date: 20180711
  Serious: Yes (Death, Hospitalization)
  Sender: FDA-Public Use
  Company Number: JP-EISAI MEDICAL RESEARCH-EC-2018-037248

PATIENT
  Age: 77 Year
  Sex: Female
  Weight: 42 kg

DRUGS (2)
  1. LENVIMA [Suspect]
     Active Substance: LENVATINIB
     Indication: THYROID CANCER
     Route: 048
     Dates: start: 20180306, end: 20180319
  2. LENVIMA [Suspect]
     Active Substance: LENVATINIB
     Route: 048
     Dates: start: 20180320, end: 20180420

REACTIONS (2)
  - Proteinuria [Recovered/Resolved]
  - Aortic thrombosis [Recovered/Resolved]

NARRATIVE: CASE EVENT DATE: 20180313
